FAERS Safety Report 6644786-4 (Version None)
Quarter: 2010Q1

REPORT INFORMATION
  Report Type: 
  Country: None (occurrence: None)
  Receive Date: 20100322
  Receipt Date: 20100308
  Transmission Date: 20100710
  Serious: Yes (Hospitalization)
  Sender: FDA-Public Use
  Company Number: CA-PFIZER INC-2010029592

PATIENT
  Sex: Male

DRUGS (1)
  1. CORTEF [Suspect]
     Dosage: 2.5 MG, IN THE EVENING

REACTIONS (4)
  - ADRENOCORTICAL INSUFFICIENCY ACUTE [None]
  - FLUID RETENTION [None]
  - MYOCARDIAL INFARCTION [None]
  - WEIGHT INCREASED [None]
